FAERS Safety Report 21001258 (Version 2)
Quarter: 2022Q3

REPORT INFORMATION
  Report Type: Report from Study
  Country: US (occurrence: US)
  Receive Date: 20220624
  Receipt Date: 20220714
  Transmission Date: 20221026
  Serious: Yes (Hospitalization, Other)
  Sender: FDA-Public Use
  Company Number: US-ABBVIE-22K-163-4444082-00

PATIENT
  Sex: Female

DRUGS (1)
  1. SKYRIZI [Suspect]
     Active Substance: RISANKIZUMAB-RZAA
     Indication: Psoriasis
     Route: 058

REACTIONS (11)
  - Intra-abdominal fluid collection [Not Recovered/Not Resolved]
  - Sepsis [Recovered/Resolved]
  - Ovarian cyst ruptured [Recovered/Resolved]
  - Malabsorption [Unknown]
  - Renal pain [Not Recovered/Not Resolved]
  - Nausea [Unknown]
  - Vomiting [Unknown]
  - Dysmenorrhoea [Not Recovered/Not Resolved]
  - Abdominal pain upper [Not Recovered/Not Resolved]
  - Kidney infection [Recovered/Resolved]
  - Abdominal distension [Recovering/Resolving]
